FAERS Safety Report 8021885-6 (Version None)
Quarter: 2012Q1

REPORT INFORMATION
  Report Type: 
  Country: None (occurrence: None)
  Receive Date: 20120104
  Receipt Date: 20111228
  Transmission Date: 20120608
  Serious: Yes (Death)
  Sender: FDA-Public Use
  Company Number: MA-BAXTER-2012BH000051

PATIENT
  Age: 50 Year
  Sex: Male

DRUGS (4)
  1. PREDNISONE TAB [Concomitant]
     Indication: BURKITT'S LYMPHOMA
     Route: 065
  2. DEXTROSE 5% [Concomitant]
     Indication: FLUID REPLACEMENT
     Route: 042
  3. CYCLOPHOSPHAMIDE [Suspect]
     Indication: BURKITT'S LYMPHOMA
     Route: 042
  4. SODIUM BICARBONATE [Suspect]
     Indication: FLUID REPLACEMENT
     Route: 042

REACTIONS (2)
  - HICCUPS [None]
  - HYPONATRAEMIA [None]
